FAERS Safety Report 4832511-9 (Version None)
Quarter: 2005Q4

REPORT INFORMATION
  Report Type: 
  Country: None (occurrence: None)
  Receive Date: 20051121
  Receipt Date: 20051110
  Transmission Date: 20060501
  Serious: Yes (Hospitalization, Other)
  Sender: FDA-Public Use
  Company Number: AT-JNJFOC-20050701941

PATIENT
  Age: 53 Year
  Sex: Male

DRUGS (21)
  1. RISPERDAL [Suspect]
     Dates: start: 20050329, end: 20050505
  2. RISPERDAL [Suspect]
     Dates: start: 20050329, end: 20050505
  3. RISPERDAL [Suspect]
     Dates: start: 20050329, end: 20050505
  4. QUILONORM [Interacting]
  5. QUILONORM [Interacting]
  6. QUILONORM [Interacting]
  7. QUILONORM [Interacting]
  8. QUILONORM [Interacting]
  9. QUILONORM [Interacting]
  10. XANOR [Concomitant]
  11. XANOR [Concomitant]
  12. XANOR [Concomitant]
  13. XANOR [Concomitant]
  14. XANOR [Concomitant]
  15. XANOR [Concomitant]
  16. XANOR [Concomitant]
  17. XANOR [Concomitant]
  18. TRITTICO [Concomitant]
  19. TRUXAL [Concomitant]
  20. NOZINAN [Concomitant]
  21. AKINETON RET [Concomitant]

REACTIONS (3)
  - DRUG INTERACTION [None]
  - OEDEMA PERIPHERAL [None]
  - POLYDIPSIA [None]
